FAERS Safety Report 9374371 (Version 2)
Quarter: 2013Q3

REPORT INFORMATION
  Report Type: Spontaneous
  Country: US (occurrence: US)
  Receive Date: 20130628
  Receipt Date: 20130802
  Transmission Date: 20140515
  Serious: Yes (Death)
  Sender: FDA-Public Use
  Company Number: US-AMGEN-USASP2013045493

PATIENT
  Age: 88 Year
  Sex: Female
  Weight: 42.18 kg

DRUGS (4)
  1. PROLIA [Suspect]
     Indication: OSTEOPOROSIS
     Dosage: 60 UNK, Q6MO
     Route: 058
     Dates: start: 20120724
  2. NAMENDA [Concomitant]
  3. LYRICA [Concomitant]
  4. TRAZODONE [Concomitant]

REACTIONS (1)
  - Death [Fatal]
